FAERS Safety Report 6628457-6 (Version None)
Quarter: 2010Q1

REPORT INFORMATION
  Report Type: 
  Country: None (occurrence: None)
  Receive Date: 20100311
  Receipt Date: 20100303
  Transmission Date: 20100710
  Serious: Yes (Other)
  Sender: FDA-Public Use
  Company Number: NL-B.I. PHARMACEUTICALS,INC./RIDGEFIELD-2010-NL-00087NL

PATIENT
  Sex: Female
  Weight: 100 kg

DRUGS (6)
  1. SPIRIVA [Suspect]
     Indication: CHRONIC OBSTRUCTIVE PULMONARY DISEASE
  2. SPIRIVA [Suspect]
     Dosage: 5 MCG
     Dates: start: 20100205, end: 20100210
  3. OXAZEPAM [Suspect]
     Dosage: 25 MG
     Route: 048
  4. FUROSEMIDE [Concomitant]
     Indication: OEDEMA
     Dosage: 40 MG
     Route: 048
  5. ATENOLOL [Concomitant]
     Indication: HYPERTENSION
     Dosage: 50 MG
     Route: 048
  6. LEVOCABASTINE [Concomitant]
     Indication: HYPERSENSITIVITY
     Dosage: 200 MG
     Route: 045

REACTIONS (5)
  - DRUG ABUSER [None]
  - DRY MOUTH [None]
  - OROPHARYNGEAL PAIN [None]
  - RHINORRHOEA [None]
  - THROAT TIGHTNESS [None]
